FAERS Safety Report 18522409 (Version 1)
Quarter: 2020Q4

REPORT INFORMATION
  Report Type: Report from Study
  Country: US (occurrence: US)
  Receive Date: 20201119
  Receipt Date: 20201119
  Transmission Date: 20210114
  Serious: Yes (Other)
  Sender: FDA-Public Use
  Company Number: US-PUMA BIOTECHNOLOGY, LTD.-2020US003154

PATIENT

DRUGS (9)
  1. NERLYNX [Suspect]
     Active Substance: NERATINIB
     Dosage: 160 MG (4 TABLETS), DAILY
     Route: 048
     Dates: start: 2020, end: 2020
  2. NERLYNX [Suspect]
     Active Substance: NERATINIB
     Dosage: 200 MG (5 TABLETS), DAILY
     Route: 048
     Dates: start: 2020, end: 2020
  3. NERLYNX [Suspect]
     Active Substance: NERATINIB
     Dosage: 160 MG (4 TABLETS), DAILY
     Route: 048
     Dates: start: 2020, end: 20200813
  4. NERLYNX [Suspect]
     Active Substance: NERATINIB
     Dosage: UNK
     Route: 048
     Dates: start: 2020, end: 2020
  5. NERLYNX [Suspect]
     Active Substance: NERATINIB
     Dosage: 120 MG (3 TABLETS), DAILY
     Route: 048
     Dates: start: 2020, end: 2020
  6. NERLYNX [Suspect]
     Active Substance: NERATINIB
     Dosage: 80 MG (2 TABLETS), DAILY
     Route: 048
     Dates: start: 2020, end: 2020
  7. NERLYNX [Suspect]
     Active Substance: NERATINIB
     Indication: BREAST CANCER FEMALE
     Dosage: 240 MG (6 TABLETS), DAILY
     Route: 048
     Dates: start: 20200316, end: 2020
  8. NERLYNX [Suspect]
     Active Substance: NERATINIB
     Dosage: 40 MG (1 TABLET), DAILY
     Route: 048
     Dates: start: 2020, end: 2020
  9. NERLYNX [Suspect]
     Active Substance: NERATINIB
     Dosage: 240 MG (6 TABLETS), DAILY
     Route: 048
     Dates: start: 2020, end: 2020

REACTIONS (9)
  - Diarrhoea [Recovering/Resolving]
  - Haemorrhage [Unknown]
  - Pruritus [Not Recovered/Not Resolved]
  - Abdominal distension [Not Recovered/Not Resolved]
  - Infection [Not Recovered/Not Resolved]
  - Flatulence [Not Recovered/Not Resolved]
  - Haematochezia [Unknown]
  - Abdominal pain [Unknown]
  - Abdominal pain upper [Recovering/Resolving]

NARRATIVE: CASE EVENT DATE: 2020
